FAERS Safety Report 11346419 (Version 1)
Quarter: 2015Q3

REPORT INFORMATION
  Report Type: Spontaneous
  Country: US (occurrence: US)
  Receive Date: 20150803
  Receipt Date: 20150803
  Transmission Date: 20151125
  Serious: No
  Sender: FDA-Public Use
  Company Number: US-ELI_LILLY_AND_COMPANY-US201009006943

PATIENT
  Sex: Male

DRUGS (4)
  1. HALDOL [Concomitant]
     Active Substance: HALOPERIDOL
     Dosage: 5 MG, DAILY (1/D)
     Dates: start: 20100125
  2. ZYPREXA [Suspect]
     Active Substance: OLANZAPINE
     Dosage: 25 MG, DAILY (1/D)
     Dates: start: 20100125
  3. LITHIUM. [Concomitant]
     Active Substance: LITHIUM
     Dosage: 1500 MBQ, DAILY (1/D)
     Dates: start: 20100125
  4. ZYPREXA [Suspect]
     Active Substance: OLANZAPINE
     Indication: SCHIZOPHRENIA
     Dosage: 30 MG, UNK

REACTIONS (4)
  - Tremor [Unknown]
  - Prescribed overdose [Unknown]
  - Sexual dysfunction [Unknown]
  - Loss of libido [Unknown]
